FAERS Safety Report 11841533 (Version 1)
Quarter: 2015Q4

REPORT INFORMATION
  Report Type: Other
  Country: GB (occurrence: GB)
  Receive Date: 20151216
  Receipt Date: 20151216
  Transmission Date: 20160305
  Serious: Yes (Other)
  Sender: FDA-Public Use
  Company Number: GB-MYLANLABS-2015M1043628

PATIENT

DRUGS (4)
  1. LANSOPRAZOLE. [Suspect]
     Active Substance: LANSOPRAZOLE
     Indication: NAUSEA
  2. ABIRATERONE [Concomitant]
     Active Substance: ABIRATERONE
     Dosage: UNK
  3. ENBREL [Concomitant]
     Active Substance: ETANERCEPT
     Dosage: UNK
  4. LANSOPRAZOLE. [Suspect]
     Active Substance: LANSOPRAZOLE
     Indication: DYSPEPSIA
     Dosage: UNK

REACTIONS (1)
  - Drug ineffective [Unknown]
